FAERS Safety Report 8879720 (Version 1)
Quarter: 2012Q4

REPORT INFORMATION
  Report Type: 
  Country: CA (occurrence: CA)
  Receive Date: 20121101
  Receipt Date: 20121101
  Transmission Date: 20130627
  Serious: Yes (Other)
  Sender: FDA-Public Use
  Company Number: PHHY2005CA007811

PATIENT
  Sex: Female

DRUGS (7)
  1. SANDOSTATIN LAR [Suspect]
     Indication: SHORT-BOWEL SYNDROME
     Dosage: 20 mg, every 4 weeks
     Dates: start: 20050411
  2. ATIVAN [Concomitant]
  3. IMODIUM [Concomitant]
  4. PANTOLOC [Concomitant]
  5. PAXIL [Concomitant]
  6. QUESTRAN [Concomitant]
  7. MULTIVITAMINS [Concomitant]

REACTIONS (11)
  - Blood pressure decreased [Unknown]
  - Hyperglycaemia [Unknown]
  - Blood glucose increased [Unknown]
  - Bradycardia [Unknown]
  - Heart rate decreased [Unknown]
  - Decreased appetite [Unknown]
  - Fatigue [Unknown]
  - Diarrhoea [Unknown]
  - Nausea [Unknown]
  - Abdominal pain [Unknown]
  - Injection site pain [Unknown]
